FAERS Safety Report 5975211-4 (Version None)
Quarter: 2008Q4

REPORT INFORMATION
  Report Type: 
  Country: None (occurrence: None)
  Receive Date: 20081101
  Receipt Date: 20081124
  Transmission Date: 20090506
  Serious: Yes (Life-Threatening, Hospitalization)
  Sender: FDA-Public Use
  Company Number: 20364

PATIENT
  Age: 81 Year
  Sex: Male

DRUGS (1)
  1. CYTARABINE [Suspect]
     Indication: ACUTE MYELOID LEUKAEMIA
     Dosage: 39.6 MG QD SC
     Route: 058
     Dates: start: 20081001, end: 20081002

REACTIONS (3)
  - GENERAL PHYSICAL CONDITION ABNORMAL [None]
  - HYPERTENSIVE CRISIS [None]
  - PULMONARY OEDEMA [None]
